FAERS Safety Report 10328091 (Version 1)
Quarter: 2014Q3

REPORT INFORMATION
  Report Type: Spontaneous
  Country: CN (occurrence: CN)
  Receive Date: 20140721
  Receipt Date: 20140721
  Transmission Date: 20150326
  Serious: Yes (Hospitalization)
  Sender: FDA-Public Use
  Company Number: CN-JNJFOC-20140705427

PATIENT
  Age: 35 Year
  Sex: Male
  Weight: 55 kg

DRUGS (1)
  1. TYLENOL COLD [Suspect]
     Active Substance: ACETAMINOPHEN\CHLORPHENIRAMINE MALEATE\PHENYLPROPANOLAMINE
     Indication: NASOPHARYNGITIS
     Route: 048
     Dates: start: 20131210, end: 20131210

REACTIONS (1)
  - Drug eruption [Recovering/Resolving]

NARRATIVE: CASE EVENT DATE: 20131211
